FAERS Safety Report 5028324-8 (Version None)
Quarter: 2006Q2

REPORT INFORMATION
  Report Type: 
  Country: None (occurrence: None)
  Receive Date: 20060613
  Receipt Date: 20060608
  Transmission Date: 20061013
  Serious: Yes (Hospitalization)
  Sender: FDA-Public Use
  Company Number: 007670

PATIENT
  Age: 20 Year
  Sex: Female
  Weight: 54.4 kg

DRUGS (3)
  1. PLAN B [Suspect]
     Indication: CONTRACEPTION
     Dosage: 1 TABLET, Q12HR, ORAL
     Route: 048
     Dates: start: 20060519, end: 20060520
  2. ORTHO TRI-CYCLEN [Concomitant]
  3. ANTIBIOTICS [Concomitant]

REACTIONS (5)
  - ABDOMINAL PAIN [None]
  - BREAST TENDERNESS [None]
  - FLATULENCE [None]
  - OLIGOMENORRHOEA [None]
  - PANCREATITIS [None]
